FAERS Safety Report 9786573 (Version 2)
Quarter: 2014Q1

REPORT INFORMATION
  Report Type: Report from Study
  Country: BE (occurrence: BE)
  Receive Date: 20131227
  Receipt Date: 20140131
  Transmission Date: 20141002
  Serious: Yes (Death)
  Sender: FDA-Public Use
  Company Number: BE-CELGENEUS-013-21880-13123133

PATIENT
  Age: 84 Year
  Sex: Male
  Weight: 52 kg

DRUGS (6)
  1. REVLIMID [Suspect]
     Indication: PLASMA CELL MYELOMA
     Route: 048
     Dates: start: 20131015, end: 20131109
  2. DEXAMETHASONE [Concomitant]
     Indication: PLASMA CELL MYELOMA
     Dosage: 40 MILLIGRAM
     Route: 065
     Dates: start: 20131015, end: 20131109
  3. EPREX [Concomitant]
     Indication: PLASMA CELL MYELOMA
     Dosage: UNIT
     Route: 065
     Dates: start: 20131015, end: 20131109
  4. SIMVASTATINE [Concomitant]
     Indication: HYPERCHOLESTEROLAEMIA
     Route: 065
     Dates: start: 20100427, end: 20131003
  5. PLAVIX [Concomitant]
     Indication: PROPHYLAXIS
     Route: 065
     Dates: start: 20100427, end: 20131003
  6. LORAZEPAM [Concomitant]
     Indication: INSOMNIA
     Route: 065
     Dates: start: 20130422, end: 20131108

REACTIONS (1)
  - Plasma cell myeloma [Fatal]
